FAERS Safety Report 4971396-7 (Version None)
Quarter: 2006Q2

REPORT INFORMATION
  Report Type: 
  Country: None (occurrence: None)
  Receive Date: 20060411
  Receipt Date: 20060411
  Transmission Date: 20061013
  Serious: No
  Sender: FDA-Public Use
  Company Number: None

PATIENT
  Age: 41 Year
  Sex: Female

DRUGS (2)
  1. OXYCONTIN [Suspect]
     Indication: ABDOMINAL PAIN
     Dosage: 40 MG PO  40
     Route: 048
     Dates: start: 20060101
  2. OXYCONTIN [Suspect]
     Indication: CROHN'S DISEASE
     Dosage: 40 MG PO  40
     Route: 048
     Dates: start: 20060101

REACTIONS (5)
  - AFFECT LABILITY [None]
  - DRUG INEFFECTIVE [None]
  - HYPERHIDROSIS [None]
  - INCORRECT DOSE ADMINISTERED [None]
  - THERAPEUTIC RESPONSE UNEXPECTED WITH DRUG SUBSTITUTION [None]
